FAERS Safety Report 10579140 (Version 1)
Quarter: 2014Q4

REPORT INFORMATION
  Report Type: Report from Study
  Country: US (occurrence: US)
  Receive Date: 20141112
  Receipt Date: 20141112
  Transmission Date: 20150529
  Serious: Yes (Hospitalization)
  Sender: FDA-Public Use
  Company Number: US-ACTELION-A-US2014-107719

PATIENT
  Age: 72 Year
  Sex: Male

DRUGS (3)
  1. MACITENTAN [Suspect]
     Active Substance: MACITENTAN
     Indication: PULMONARY ARTERIAL HYPERTENSION
     Dosage: 10 MG, UNK
     Route: 048
     Dates: start: 20140908
  2. ASPIRIN. [Concomitant]
     Active Substance: ASPIRIN
     Dosage: 81 MG, QD
     Dates: start: 20140508
  3. OXYGEN. [Concomitant]
     Active Substance: OXYGEN
     Dosage: 8 L/MIN, UNK
     Dates: start: 20140918

REACTIONS (1)
  - Vascular operation [Unknown]

NARRATIVE: CASE EVENT DATE: 20141004
